FAERS Safety Report 18482713 (Version 3)
Quarter: 2021Q2

REPORT INFORMATION
  Report Type: Spontaneous
  Country: JP (occurrence: JP)
  Receive Date: 20201109
  Receipt Date: 20210420
  Transmission Date: 20210717
  Serious: Yes (Death, Other)
  Sender: FDA-Public Use
  Company Number: JP-BRISTOL-MYERS SQUIBB COMPANY-BMS-2020-093682

PATIENT
  Age: 60 Year
  Sex: Male

DRUGS (1)
  1. OPDIVO [Suspect]
     Active Substance: NIVOLUMAB
     Indication: OESOPHAGEAL CARCINOMA
     Dosage: UNK
     Route: 041

REACTIONS (4)
  - Malignant neoplasm progression [Fatal]
  - Hypothyroidism [Unknown]
  - Diabetes mellitus [Recovering/Resolving]
  - Adrenal insufficiency [Unknown]

NARRATIVE: CASE EVENT DATE: 20201102
